FAERS Safety Report 8165600 (Version 9)
Quarter: 2012Q4

REPORT INFORMATION
  Report Type: Report from Study
  Country: DE (occurrence: DE)
  Receive Date: 20111003
  Receipt Date: 20120914
  Transmission Date: 20130627
  Serious: Yes (Death, Hospitalization)
  Sender: FDA-Public Use
  Company Number: DE-SANOFI-AVENTIS-2011SA026552

PATIENT
  Age: 72 Year
  Sex: Female
  Weight: 58 kg

DRUGS (25)
  1. OXALIPLATIN [Suspect]
     Indication: RECTAL CANCER
     Dosage: Last dose prior to SAE: 21 apr 2011
     Route: 042
     Dates: start: 20110322
  2. OXALIPLATIN [Suspect]
     Indication: RECTAL CANCER
     Route: 042
     Dates: end: 20110421
  3. CAPECITABINE [Suspect]
     Indication: RECTAL CANCER
     Route: 065
     Dates: start: 20110309
  4. CAPECITABINE [Suspect]
     Indication: RECTAL CANCER
     Route: 048
     Dates: end: 20111123
  5. CAPECITABINE [Suspect]
     Indication: RECTAL CANCER
     Dosage: Last dose prior to SAE: 28oct2011
     Route: 048
     Dates: start: 20110321
  6. CAPECITABINE [Suspect]
     Indication: RECTAL CANCER
     Route: 065
     Dates: end: 20110426
  7. THERAPEUTIC RADIOPHARMACEUTICALS [Suspect]
     Indication: RECTAL CANCER
     Dosage: 28 fractions of 1.8 Gy, total dose 50.4 Gy
     Route: 065
     Dates: start: 20110321, end: 20110429
  8. SULFASALAZINE [Concomitant]
     Indication: ENTERITIS
     Route: 048
     Dates: start: 20110418
  9. SMECTITE [Concomitant]
     Indication: DIARRHEA
     Route: 048
     Dates: start: 20110418, end: 20110422
  10. SMECTITE [Concomitant]
     Indication: DIARRHEA
     Dosage: Dose : 797 mg and 87 mg
     Route: 048
     Dates: start: 20110503, end: 20110504
  11. LIPID EMULSION [Concomitant]
     Indication: MALNUTRITION
     Dosage: 1100 kcal
     Route: 042
     Dates: start: 20110428, end: 20110513
  12. ADDEL N ^BAXTER^ [Concomitant]
     Indication: MALNUTRITION
     Route: 042
     Dates: start: 20110428, end: 20110513
  13. MULTIVITAMINS [Concomitant]
     Indication: MALNUTRITION
     Route: 042
     Dates: start: 20110428, end: 20110513
  14. MUTAFLOR [Concomitant]
     Indication: GASTROINTESTINAL INFLAMMATION
     Dosage: 500 million bacteria of e.choli
     Route: 048
     Dates: start: 20110429, end: 20110504
  15. MUTAFLOR [Concomitant]
     Indication: GASTROINTESTINAL INFLAMMATION
     Dosage: 500 million bacteria of e.choli
     Route: 048
     Dates: start: 20110511, end: 20110516
  16. METOPROLOL [Concomitant]
     Indication: HYPERTENSION ARTERIAL
     Route: 048
  17. LOPERAMIDE [Concomitant]
     Indication: DIARRHEA
     Route: 048
     Dates: start: 20110404, end: 20110427
  18. LOPERAMIDE [Concomitant]
     Indication: DIARRHEA
     Dates: end: 20110514
  19. LOPERAMIDE [Concomitant]
     Indication: DIARRHEA
     Route: 048
     Dates: start: 20111108, end: 20111218
  20. CETIRIZINE HYDROCHLORIDE [Concomitant]
     Indication: PRURITIS
     Route: 048
     Dates: start: 20111109, end: 20111218
  21. FAT EMULSIONS [Concomitant]
     Route: 042
  22. POTASSIUM CHLORIDE [Concomitant]
     Indication: POTASSIUM LOW
     Route: 042
     Dates: start: 20111102, end: 20111220
  23. ENOXAPARIN SODIUM [Concomitant]
  24. JONOSTERIL [Concomitant]
     Indication: MALNUTRITION
     Route: 042
     Dates: start: 20111101, end: 20111221
  25. KABIVEN [Concomitant]
     Indication: MALNUTRITION
     Route: 042
     Dates: start: 20111101, end: 20111213

REACTIONS (14)
  - Pancytopenia [Fatal]
  - Vertigo [Fatal]
  - Petechiae [Fatal]
  - Colitis [Fatal]
  - Vomiting [Recovered/Resolved]
  - Malaise [Fatal]
  - General physical health deterioration [Fatal]
  - Diarrhoea [Fatal]
  - Abdominal pain [Fatal]
  - Dehydration [Recovered/Resolved]
  - Dehydration [Unknown]
  - Staphylococcal infection [Recovered/Resolved]
  - Pneumonia [Recovered/Resolved]
  - Abdominal wall abscess [Recovered/Resolved]
